FAERS Safety Report 4545978-0 (Version None)
Quarter: 2005Q1

REPORT INFORMATION
  Report Type: 
  Country: None (occurrence: None)
  Receive Date: 20050103
  Receipt Date: 20041216
  Transmission Date: 20050727
  Serious: Yes (Hospitalization)
  Sender: FDA-Public Use
  Company Number: 2004BI001639

PATIENT
  Age: 44 Year
  Sex: Male

DRUGS (1)
  1. AVONEX [Suspect]
     Indication: MULTIPLE SCLEROSIS
     Dosage: 30 UG; QW; IM
     Route: 030
     Dates: start: 20000901

REACTIONS (6)
  - DIPLOPIA [None]
  - FLUID RETENTION [None]
  - MUSCULOSKELETAL STIFFNESS [None]
  - PAIN [None]
  - URINARY TRACT INFECTION [None]
  - VERTIGO [None]
